FAERS Safety Report 13493219 (Version 1)
Quarter: 2017Q2

REPORT INFORMATION
  Report Type: Spontaneous
  Country: US (occurrence: US)
  Receive Date: 20170427
  Receipt Date: 20170427
  Transmission Date: 20170830
  Serious: No
  Sender: FDA-Public Use
  Company Number: US-ROCHE-1360483

PATIENT
  Sex: Male

DRUGS (7)
  1. SIMVASTATIN. [Concomitant]
     Active Substance: SIMVASTATIN
     Indication: BLOOD CHOLESTEROL
     Route: 048
  2. NEXIUM [Concomitant]
     Active Substance: ESOMEPRAZOLE MAGNESIUM
     Indication: GASTROOESOPHAGEAL REFLUX DISEASE
     Route: 048
  3. WHEY PROTEIN [Concomitant]
     Active Substance: WHEY
     Dosage: 1 SCOOP A DAY
     Route: 048
  4. FLOMAX [Concomitant]
     Active Substance: TAMSULOSIN HYDROCHLORIDE
     Indication: PROSTATOMEGALY
     Route: 048
  5. ERIVEDGE [Suspect]
     Active Substance: VISMODEGIB
     Indication: BRAIN NEOPLASM
     Route: 048
     Dates: start: 20130315, end: 20140304
  6. ASPIRIN. [Concomitant]
     Active Substance: ASPIRIN
     Indication: ANTICOAGULANT THERAPY
     Route: 065
  7. PLAVIX [Suspect]
     Active Substance: CLOPIDOGREL BISULFATE
     Indication: ANTICOAGULANT THERAPY
     Route: 065
     Dates: start: 2013

REACTIONS (8)
  - Dysgeusia [Unknown]
  - Muscle spasms [Unknown]
  - Drug ineffective [Unknown]
  - Neoplasm [Unknown]
  - Speech disorder [Unknown]
  - Insomnia [Unknown]
  - Nausea [Recovered/Resolved]
  - Epistaxis [Unknown]
